FAERS Safety Report 4918438-2 (Version None)
Quarter: 2006Q1

REPORT INFORMATION
  Report Type: 
  Country: None (occurrence: None)
  Receive Date: 20060214
  Receipt Date: 20060125
  Transmission Date: 20060701
  Serious: Yes (Other)
  Sender: FDA-Public Use
  Company Number: GB200601004382

PATIENT
  Age: 14 Year
  Sex: Male

DRUGS (3)
  1. STRATTERA [Suspect]
     Dosage: 40 MG,
     Dates: start: 20051101
  2. VALPROATE SODIUM [Concomitant]
  3. CLONAZEPAM [Concomitant]

REACTIONS (2)
  - ABNORMAL BEHAVIOUR [None]
  - DEAFNESS [None]
